FAERS Safety Report 13448611 (Version 1)
Quarter: 2017Q2

REPORT INFORMATION
  Report Type: Report from Study
  Country: JP (occurrence: JP)
  Receive Date: 20170417
  Receipt Date: 20170417
  Transmission Date: 20170830
  Serious: Yes (Death, Other)
  Sender: FDA-Public Use
  Company Number: PHHY2009JP074266

PATIENT
  Age: 59 Year
  Sex: Female
  Weight: 40 kg

DRUGS (4)
  1. XELODA [Suspect]
     Active Substance: CAPECITABINE
     Indication: PRODUCT USED FOR UNKNOWN INDICATION
     Dosage: UNK
     Route: 065
     Dates: start: 20080606, end: 20081202
  2. PYDOXAL [Concomitant]
     Active Substance: PYRIDOXAL
     Indication: PROPHYLAXIS
     Dosage: 1800 MG, QD
     Route: 048
     Dates: start: 20090709, end: 20090715
  3. XELODA [Suspect]
     Active Substance: CAPECITABINE
     Dosage: 1800 MG, QD IN UNKNOWN DEVIDED DOSES (TABLET))
     Route: 048
     Dates: start: 20090709, end: 20090715
  4. TYKERB [Suspect]
     Active Substance: LAPATINIB DITOSYLATE
     Indication: BREAST CANCER
     Dosage: 1250 MG, QD (IN UNKNOWN DEVIDED DOSES)
     Route: 048
     Dates: start: 20090709, end: 20090715

REACTIONS (5)
  - Erythema multiforme [Recovered/Resolved]
  - Breast cancer [Fatal]
  - Diarrhoea [Recovered/Resolved]
  - Skin exfoliation [Unknown]
  - Malignant neoplasm progression [Fatal]

NARRATIVE: CASE EVENT DATE: 20090713
